FAERS Safety Report 9840361 (Version 1)
Quarter: 2014Q1

REPORT INFORMATION
  Report Type: Report from Study
  Country: CA (occurrence: CA)
  Receive Date: 20140124
  Receipt Date: 20140124
  Transmission Date: 20141002
  Serious: Yes (Other)
  Sender: FDA-Public Use
  Company Number: CA-JNJFOC-20140110343

PATIENT
  Age: 22 Year
  Sex: Female
  Weight: 99.7 kg

DRUGS (3)
  1. REMICADE [Suspect]
     Indication: CROHN^S DISEASE
     Dosage: THIRD INDUCTION DOSE
     Route: 042
  2. SALBUTAMOL [Concomitant]
     Route: 065
  3. ALESSE BIRTH CONTROL PILL [Concomitant]
     Route: 065

REACTIONS (3)
  - Anxiety [Recovering/Resolving]
  - Blood pressure systolic increased [Recovering/Resolving]
  - Feeling hot [Recovering/Resolving]
